FAERS Safety Report 14495323 (Version 1)
Quarter: 2018Q1

REPORT INFORMATION
  Report Type: Spontaneous
  Country: US (occurrence: US)
  Receive Date: 20180206
  Receipt Date: 20180206
  Transmission Date: 20180509
  Serious: No
  Sender: FDA-Public Use
  Company Number: US-SMITH AND NEPHEW, INC-2017SMT00460

PATIENT
  Sex: Female
  Weight: 63.49 kg

DRUGS (9)
  1. PREDNISONE. [Concomitant]
     Active Substance: PREDNISONE
     Dosage: 3 MG, 1X/DAY
  2. ASPIRIN. [Concomitant]
     Active Substance: ASPIRIN
     Dosage: 81 MG, 1X/DAY
  3. REGRANEX [Suspect]
     Active Substance: BECAPLERMIN
     Dosage: UNK, 1X/DAY FOR 24 HOURS
     Route: 061
     Dates: start: 201705, end: 2017
  4. LYRICA [Concomitant]
     Active Substance: PREGABALIN
     Dosage: 300 MG, 2X/DAY
  5. POTASSIUM CITRATE. [Concomitant]
     Active Substance: POTASSIUM CITRATE
     Dosage: 20 MEQ, 2X/DAY
  6. LEVOTHYROXINE. [Concomitant]
     Active Substance: LEVOTHYROXINE
     Dosage: 137 ?G, 1X/DAY
  7. REGRANEX [Suspect]
     Active Substance: BECAPLERMIN
     Indication: WOUND
     Dosage: UNK, 1X/DAY FOR 12 HOURS ON AND 12 HOURS OFF
     Route: 061
     Dates: start: 20170516, end: 201705
  8. PAXIL [Concomitant]
     Active Substance: PAROXETINE HYDROCHLORIDE
     Dosage: 60 MG, 1X/DAY
  9. METFORMIN [Concomitant]
     Active Substance: METFORMIN HYDROCHLORIDE
     Dosage: 500 MG, 1X/DAY

REACTIONS (2)
  - Inappropriate schedule of drug administration [Recovered/Resolved]
  - Excessive granulation tissue [Recovering/Resolving]

NARRATIVE: CASE EVENT DATE: 2017
